FAERS Safety Report 21994804 (Version 1)
Quarter: 2023Q1

REPORT INFORMATION
  Report Type: Spontaneous
  Country: US (occurrence: US)
  Receive Date: 20230215
  Receipt Date: 20230215
  Transmission Date: 20230418
  Serious: Yes (Death, Hospitalization)
  Sender: FDA-Public Use
  Company Number: US-MYLANLABS-2023M1016674

PATIENT
  Age: 62 Year
  Sex: Male

DRUGS (6)
  1. METFORMIN [Suspect]
     Active Substance: METFORMIN HYDROCHLORIDE
     Indication: Diabetes mellitus
     Dosage: UNK
     Route: 065
  2. INSULIN NOS [Suspect]
     Active Substance: INSULIN NOS
     Indication: Lactic acidosis
     Dosage: UNK (DOSE: HIGH DOSE)
     Route: 065
  3. DEXTROSE [Suspect]
     Active Substance: DEXTROSE
     Indication: Lactic acidosis
     Dosage: UNK
     Route: 065
  4. CHARCOAL [Suspect]
     Active Substance: ACTIVATED CHARCOAL
     Indication: Lactic acidosis
     Dosage: UNK (VIA NASOGASTRIC TUBE)
     Route: 065
  5. SODIUM BICARBONATE [Suspect]
     Active Substance: SODIUM BICARBONATE
     Indication: Lactic acidosis
     Dosage: UNK (PUSHES)
     Route: 042
  6. SODIUM BICARBONATE [Suspect]
     Active Substance: SODIUM BICARBONATE
     Dosage: UNK (DRIP)
     Route: 042

REACTIONS (5)
  - Lactic acidosis [Fatal]
  - Shock [Fatal]
  - Intentional overdose [Fatal]
  - Drug ineffective for unapproved indication [Fatal]
  - Off label use [Unknown]
